FAERS Safety Report 14386932 (Version 2)
Quarter: 2019Q3

REPORT INFORMATION
  Report Type: Spontaneous
  Country: US (occurrence: US)
  Receive Date: 20180115
  Receipt Date: 20190822
  Transmission Date: 20191004
  Serious: Yes (Other)
  Sender: FDA-Public Use
  Company Number: US-SA-2017SA152344

PATIENT
  Age: 65 Year
  Sex: Female
  Weight: 58.96 kg

DRUGS (7)
  1. PARAPLATIN [Concomitant]
     Active Substance: CARBOPLATIN
     Dosage: UNK UNK, Q3W
     Route: 065
     Dates: start: 20111123, end: 20111123
  2. TAXOTERE [Suspect]
     Active Substance: DOCETAXEL
     Dosage: 114 MG,Q3W
     Route: 042
     Dates: start: 20111123, end: 20111123
  3. SIMVASTATIN. [Concomitant]
     Active Substance: SIMVASTATIN
     Dosage: UNK UNK,UNK
     Route: 065
     Dates: start: 201001
  4. ARIMIDEX [Concomitant]
     Active Substance: ANASTROZOLE
     Dosage: UNK UNK,UNK
     Route: 065
     Dates: start: 201203, end: 201608
  5. TAXOTERE [Suspect]
     Active Substance: DOCETAXEL
     Indication: BREAST CANCER FEMALE
     Dosage: 114 MG,Q3W
     Route: 042
     Dates: start: 20110810, end: 20110810
  6. PARAPLATIN [Concomitant]
     Active Substance: CARBOPLATIN
     Indication: BREAST CANCER FEMALE
     Dosage: UNK UNK, Q3W
     Route: 065
     Dates: start: 20110810, end: 20110810
  7. FLUOXETINE [Concomitant]
     Active Substance: FLUOXETINE HYDROCHLORIDE
     Dosage: UNK UNK,UNK
     Route: 065
     Dates: start: 200606

REACTIONS (2)
  - Alopecia [Not Recovered/Not Resolved]
  - Psychological trauma [Unknown]

NARRATIVE: CASE EVENT DATE: 201205
